FAERS Safety Report 8279048-5 (Version None)
Quarter: 2012Q2

REPORT INFORMATION
  Report Type: 
  Country: None (occurrence: None)
  Receive Date: 20120412
  Receipt Date: 20111110
  Transmission Date: 20120825
  Serious: No
  Sender: FDA-Public Use
  Company Number: US-ASTRAZENECA-2011SE68435

PATIENT
  Sex: Female

DRUGS (12)
  1. LISINOPRIL [Suspect]
     Route: 048
  2. LASIX [Concomitant]
     Route: 048
  3. LEVOTHYROXINE SODIUM [Concomitant]
     Route: 048
  4. PROAIR HFA [Concomitant]
     Dosage: 2 PUFFS PRN Q 4-6 HOURS
  5. KLOR-CON [Concomitant]
     Dosage: M20, 20 MEQ CR 1 BY MOUTH DAILY
     Route: 048
  6. NEXIUM [Suspect]
     Route: 048
  7. AVONEX [Concomitant]
     Dosage: 30MCG/0.5 ML
     Route: 030
  8. CRANBERRY EXTRACT [Concomitant]
     Route: 065
  9. ACIDOPHILUS [Concomitant]
     Route: 065
  10. LASIX [Concomitant]
     Route: 048
  11. OXYBUTYNIN CHLORIDE [Concomitant]
     Route: 048
  12. PROZAC [Concomitant]
     Route: 048

REACTIONS (24)
  - VULVOVAGINAL CANDIDIASIS [None]
  - CYSTITIS [None]
  - OBESITY [None]
  - URINARY TRACT INFECTION [None]
  - MULTIPLE SCLEROSIS [None]
  - HAEMATOCHEZIA [None]
  - FATIGUE [None]
  - HYPOACUSIS [None]
  - RASH [None]
  - OEDEMA PERIPHERAL [None]
  - DRUG HYPERSENSITIVITY [None]
  - VISUAL ACUITY REDUCED [None]
  - ACUTE SINUSITIS [None]
  - GASTROOESOPHAGEAL REFLUX DISEASE [None]
  - DEPRESSION [None]
  - HYPOTHYROIDISM [None]
  - COUGH [None]
  - CHEST PAIN [None]
  - BLOOD PRESSURE INCREASED [None]
  - SKIN LESION [None]
  - DISTURBANCE IN SOCIAL BEHAVIOUR [None]
  - PHARYNGITIS [None]
  - URINARY INCONTINENCE [None]
  - CONSTIPATION [None]
